FAERS Safety Report 17466510 (Version 1)
Quarter: 2020Q1

REPORT INFORMATION
  Report Type: Spontaneous
  Country: RO (occurrence: RO)
  Receive Date: 20200227
  Receipt Date: 20200227
  Transmission Date: 20200409
  Serious: Yes (Hospitalization)
  Sender: FDA-Public Use
  Company Number: RO-ASTRAZENECA-2020SE27926

PATIENT
  Age: 77 Year
  Sex: Female

DRUGS (6)
  1. BRILIQUE [Suspect]
     Active Substance: TICAGRELOR
     Indication: STENT PLACEMENT
     Route: 048
  2. SORTIS [Concomitant]
     Active Substance: ATORVASTATIN
  3. ASPENTER [Concomitant]
     Active Substance: ASPIRIN
  4. ATACAND [Concomitant]
     Active Substance: CANDESARTAN CILEXETIL
  5. ASA [Concomitant]
     Active Substance: ASPIRIN
  6. BRILIQUE [Suspect]
     Active Substance: TICAGRELOR
     Indication: ACUTE MYOCARDIAL INFARCTION
     Route: 048

REACTIONS (1)
  - Anaemia [Unknown]
